FAERS Safety Report 7102665-2 (Version None)
Quarter: 2010Q4

REPORT INFORMATION
  Report Type: 
  Country: None (occurrence: None)
  Receive Date: 20101115
  Receipt Date: 20101104
  Transmission Date: 20110411
  Serious: Yes (Other)
  Sender: FDA-Public Use
  Company Number: CH-ASTRAZENECA-2010SE52706

PATIENT
  Age: 77 Year
  Sex: Male

DRUGS (4)
  1. CRESTOR [Suspect]
     Route: 048
     Dates: start: 20101019, end: 20101026
  2. PLAVIX [Suspect]
     Route: 048
     Dates: start: 20101019, end: 20101026
  3. ASPIRIN [Concomitant]
  4. TENORMIN [Concomitant]

REACTIONS (1)
  - RASH ERYTHEMATOUS [None]
